FAERS Safety Report 25050403 (Version 1)
Quarter: 2025Q1

REPORT INFORMATION
  Report Type: Spontaneous
  Country: JP (occurrence: JP)
  Receive Date: 20250307
  Receipt Date: 20250307
  Transmission Date: 20250409
  Serious: Yes (Life-Threatening)
  Sender: MERCK SHARP & DOHME LLC
  Company Number: JP-009507513-2259341

PATIENT
  Age: 18 Year
  Sex: Male
  Weight: 115.4 kg

DRUGS (7)
  1. SUGAMMADEX SODIUM [Suspect]
     Active Substance: SUGAMMADEX SODIUM
     Indication: Neuromuscular blockade reversal
     Route: 042
     Dates: start: 20250218, end: 20250218
  2. PROPOFOL [Concomitant]
     Active Substance: PROPOFOL
     Indication: Induction of anaesthesia
     Dates: start: 20250218
  3. ROCURONIUM BROMIDE( [Concomitant]
     Indication: Induction of anaesthesia
     Dates: start: 20250218
  4. ONDANSETRON [Suspect]
     Active Substance: ONDANSETRON
     Indication: Prophylaxis of nausea and vomiting
     Route: 008
     Dates: start: 20250218, end: 20250218
  5. SEVOFLURANE [Concomitant]
     Active Substance: SEVOFLURANE
     Indication: Meniscus injury
     Dates: start: 20250218
  6. REMIFENTANIL HYDROCHLORIDE [Concomitant]
     Active Substance: REMIFENTANIL HYDROCHLORIDE
     Indication: Meniscus injury
     Dates: start: 20250218
  7. FENTANYL CITRATE [Concomitant]
     Active Substance: FENTANYL CITRATE
     Indication: Meniscus injury
     Dates: start: 20250218

REACTIONS (1)
  - Anaphylactic reaction [Recovered/Resolved]

NARRATIVE: CASE EVENT DATE: 20250218
